FAERS Safety Report 11293407 (Version 10)
Quarter: 2016Q2

REPORT INFORMATION
  Report Type: Report from Study
  Country: JP (occurrence: JP)
  Receive Date: 20150722
  Receipt Date: 20160606
  Transmission Date: 20160815
  Serious: Yes (Hospitalization)
  Sender: FDA-Public Use
  Company Number: JP-DSJP-DSJ-2015-122810

PATIENT

DRUGS (17)
  1. EDIROL [Concomitant]
     Active Substance: ELDECALCITOL
     Dosage: UNK
     Route: 065
     Dates: start: 201310
  2. DAIOKANZOTO [Concomitant]
     Active Substance: LICORICE ROOT EXTRACT\RHUBARB
     Dosage: UNK
     Route: 065
     Dates: start: 201503
  3. RINDERON V [Concomitant]
     Active Substance: BETAMETHASONE VALERATE
     Dosage: UNK
     Route: 065
     Dates: start: 20141107
  4. OLMETEC [Suspect]
     Active Substance: OLMESARTAN MEDOXOMIL
     Indication: HYPERTENSION
     Dosage: UNK
     Route: 048
  5. TAFAMIDIS MEGLUMINE [Suspect]
     Active Substance: TAFAMIDIS MEGLUMINE
     Indication: HEREDITARY NEUROPATHIC AMYLOIDOSIS
     Dosage: 20 MG, QD
     Route: 048
     Dates: start: 20140528, end: 20150730
  6. POSTERISAN                         /00521801/ [Concomitant]
     Dosage: UNK
     Route: 065
     Dates: end: 201503
  7. ADALAT [Concomitant]
     Active Substance: NIFEDIPINE
     Dosage: UNK
     Route: 065
     Dates: end: 20151002
  8. LYRICA [Suspect]
     Active Substance: PREGABALIN
     Indication: NEURALGIA
     Dosage: 75 MG, BID
     Route: 048
     Dates: start: 2010, end: 20150205
  9. TAFAMIDIS MEGLUMINE [Suspect]
     Active Substance: TAFAMIDIS MEGLUMINE
     Dosage: 20 MG, QD
     Route: 048
     Dates: start: 20150925
  10. CALBLOCK [Concomitant]
     Active Substance: AZELNIDIPINE
     Dosage: UNK
     Route: 065
     Dates: start: 201410, end: 201503
  11. LYRICA [Suspect]
     Active Substance: PREGABALIN
     Indication: HEREDITARY NEUROPATHIC AMYLOIDOSIS
  12. TOPILORIC [Concomitant]
     Active Substance: TOPIROXOSTAT
     Dosage: UNK
     Route: 065
     Dates: start: 201411, end: 201503
  13. CLINORIL [Suspect]
     Active Substance: SULINDAC
     Indication: PENILE PAIN
     Dosage: 100 MG, AS NEEDED
     Route: 048
     Dates: start: 20150227, end: 201503
  14. CERCINE [Concomitant]
     Active Substance: DIAZEPAM
     Dosage: UNK
     Route: 065
     Dates: start: 201310
  15. AZUNOL                             /00317302/ [Concomitant]
     Dosage: UNK
     Route: 065
  16. BISCOPOR [Concomitant]
     Dosage: UNK
     Route: 065
     Dates: start: 20141210
  17. REZALTAS COMBINATION TABLETS [Concomitant]
     Dosage: UNK
     Route: 065
     Dates: start: 20141120, end: 201503

REACTIONS (2)
  - Renal failure [Not Recovered/Not Resolved]
  - Deep vein thrombosis [Recovered/Resolved]

NARRATIVE: CASE EVENT DATE: 201409
